FAERS Safety Report 20100632 (Version 3)
Quarter: 2025Q4

REPORT INFORMATION
  Report Type: Spontaneous
  Country: CA (occurrence: CA)
  Receive Date: 20211123
  Receipt Date: 20251016
  Transmission Date: 20260117
  Serious: Yes (Death, Hospitalization, Other)
  Sender: TAKEDA
  Company Number: CA-TAKEDA-2021TUS073247

PATIENT
  Age: 56 Year
  Sex: Female
  Weight: 105 kg

DRUGS (2)
  1. ENTYVIO [Suspect]
     Active Substance: VEDOLIZUMAB
     Indication: Immunosuppressant drug therapy
     Dosage: 300 MILLIGRAM
  2. STELARA [Suspect]
     Active Substance: USTEKINUMAB
     Indication: Product used for unknown indication
     Dosage: UNK

REACTIONS (4)
  - Dehiscence [Fatal]
  - Herpes simplex [Fatal]
  - Cholestatic liver injury [Fatal]
  - Disseminated aspergillosis [Fatal]
